FAERS Safety Report 9828694 (Version 2)
Quarter: 2014Q2

REPORT INFORMATION
  Report Type: Spontaneous
  Country: US (occurrence: US)
  Receive Date: 20140117
  Receipt Date: 20140530
  Transmission Date: 20141212
  Serious: No
  Sender: FDA-Public Use
  Company Number: US-009507513-1401USA007769

PATIENT
  Sex: Male
  Weight: 27.21 kg

DRUGS (2)
  1. MIRALAX [Suspect]
     Indication: FAECALOMA
     Dosage: UNK, QD
     Route: 048
     Dates: start: 2012
  2. MIRALAX [Suspect]
     Dosage: UNK, QD
     Route: 048
     Dates: start: 20140105, end: 20140105

REACTIONS (5)
  - Incorrect drug administration duration [Unknown]
  - Off label use [Unknown]
  - Drug administered to patient of inappropriate age [Unknown]
  - Product odour abnormal [Unknown]
  - Product taste abnormal [Unknown]
